FAERS Safety Report 22731581 (Version 2)
Quarter: 2023Q4

REPORT INFORMATION
  Report Type: Spontaneous
  Country: GB (occurrence: GB)
  Receive Date: 20230720
  Receipt Date: 20231013
  Transmission Date: 20240109
  Serious: Yes (Other)
  Sender: FDA-Public Use
  Company Number: GB-BEH-2022142184

PATIENT
  Age: 33 Year
  Sex: Female
  Weight: 78 kg

DRUGS (4)
  1. TRANEXAMIC ACID [Suspect]
     Active Substance: TRANEXAMIC ACID
     Indication: Hereditary angioedema
     Dosage: UNK
     Route: 065
  2. TRANEXAMIC ACID [Suspect]
     Active Substance: TRANEXAMIC ACID
     Indication: Prophylaxis
  3. BERINERT [Suspect]
     Active Substance: HUMAN C1-ESTERASE INHIBITOR
     Indication: Hereditary angioedema
     Dosage: 1500 INTERNATIONAL UNIT, BIW
     Route: 058
     Dates: start: 20220210
  4. BERINERT [Suspect]
     Active Substance: HUMAN C1-ESTERASE INHIBITOR
     Indication: Prophylaxis
     Dosage: UNK
     Route: 042

REACTIONS (4)
  - Maternal exposure during pregnancy [Unknown]
  - Poor venous access [Unknown]
  - Hereditary angioedema [Unknown]
  - Off label use [Unknown]

NARRATIVE: CASE EVENT DATE: 20220210
